FAERS Safety Report 8477362-1 (Version None)
Quarter: 2012Q2

REPORT INFORMATION
  Report Type: 
  Country: None (occurrence: None)
  Receive Date: 20120620
  Receipt Date: 20120614
  Transmission Date: 20120825
  Serious: Yes (Hospitalization)
  Sender: FDA-Public Use
  Company Number: DSA_57747_2012

PATIENT
  Sex: Female

DRUGS (2)
  1. PAXIL [Concomitant]
  2. XENAZINE [Suspect]
     Indication: HUNTINGTON'S DISEASE
     Dosage: (12.5 MG (EACH MORNING) ORAL)
     Route: 048
     Dates: start: 20120401

REACTIONS (6)
  - INSOMNIA [None]
  - ABNORMAL BEHAVIOUR [None]
  - MOOD ALTERED [None]
  - MOOD SWINGS [None]
  - HALLUCINATION [None]
  - DECREASED APPETITE [None]
